FAERS Safety Report 8807394 (Version 1)
Quarter: 2012Q4

REPORT INFORMATION
  Report Type: 
  Country: US (occurrence: US)
  Receive Date: 20120925
  Receipt Date: 20120925
  Transmission Date: 20130627
  Serious: No
  Sender: FDA-Public Use
  Company Number: US-MYLANLABS-2011S1024394

PATIENT
  Age: 73 Year
  Sex: Male

DRUGS (4)
  1. NITROGLYCERIN TRANSDERMAL SYSTEM [Suspect]
     Indication: CARDIAC DISORDER
     Dosage: 8 or 9 hrs a day
     Route: 062
     Dates: start: 1991
  2. LOPRESSOR [Concomitant]
     Indication: CARDIAC DISORDER
     Route: 048
  3. ALLOPURINOL [Concomitant]
     Indication: GOUT
     Route: 048
  4. SIMVASTATIN [Concomitant]
     Route: 048

REACTIONS (5)
  - Application site pain [Not Recovered/Not Resolved]
  - Application site erythema [Not Recovered/Not Resolved]
  - Application site irritation [Not Recovered/Not Resolved]
  - Application site pruritus [Not Recovered/Not Resolved]
  - Application site rash [Not Recovered/Not Resolved]
